FAERS Safety Report 18261717 (Version 1)
Quarter: 2020Q3

REPORT INFORMATION
  Report Type: Spontaneous
  Country: CA (occurrence: CA)
  Receive Date: 20200914
  Receipt Date: 20200914
  Transmission Date: 20201103
  Serious: Yes (Other)
  Sender: FDA-Public Use
  Company Number: CA-ACCORD-200377

PATIENT
  Age: 60 Year
  Sex: Female

DRUGS (1)
  1. METHOTREXATE. [Suspect]
     Active Substance: METHOTREXATE
     Indication: PRODUCT USED FOR UNKNOWN INDICATION
     Route: 065

REACTIONS (16)
  - Myalgia [Unknown]
  - Back pain [Unknown]
  - Chest pain [Unknown]
  - Diarrhoea [Unknown]
  - Coronavirus infection [Unknown]
  - Musculoskeletal pain [Unknown]
  - Pleural effusion [Unknown]
  - Fatigue [Unknown]
  - Cough [Unknown]
  - Eye irritation [Unknown]
  - Rheumatoid arthritis [Unknown]
  - Nasopharyngitis [Unknown]
  - Rhinorrhoea [Unknown]
  - Sleep apnoea syndrome [Unknown]
  - Headache [Unknown]
  - Pyrexia [Unknown]
